FAERS Safety Report 9076381 (Version 1)
Quarter: 2013Q1

REPORT INFORMATION
  Report Type: Report from Study
  Country: US (occurrence: US)
  Receive Date: 20130129
  Receipt Date: 20130129
  Transmission Date: 20140127
  Serious: Yes (Other)
  Sender: FDA-Public Use
  Company Number: US-ABBOTT-12P-163-0946874-00

PATIENT
  Age: 47 Year
  Sex: Female

DRUGS (2)
  1. HUMIRA 40 MG/0.8 ML PEN [Suspect]
     Indication: ANKYLOSING SPONDYLITIS
     Route: 058
     Dates: start: 201203
  2. HUMIRA 40 MG/0.8 ML PEN [Suspect]

REACTIONS (3)
  - Surgery [Unknown]
  - Cough [Recovered/Resolved]
  - Dysphonia [Recovered/Resolved]
